FAERS Safety Report 6211900-4 (Version None)
Quarter: 2009Q2

REPORT INFORMATION
  Report Type: 
  Country: None (occurrence: None)
  Receive Date: 20090602
  Receipt Date: 20090522
  Transmission Date: 20091009
  Serious: Yes (Hospitalization)
  Sender: FDA-Public Use
  Company Number: US-PFIZER INC-2009218553

PATIENT
  Sex: Male
  Weight: 97.522 kg

DRUGS (2)
  1. FLAGYL [Suspect]
     Dosage: 500 MG, 3X/DAY
     Dates: start: 20090513, end: 20090501
  2. ALPRAZOLAM [Suspect]
     Dosage: 1 MG, 1X/DAY

REACTIONS (5)
  - ABDOMINAL PAIN [None]
  - CRYING [None]
  - NERVE INJURY [None]
  - PARAESTHESIA [None]
  - SWOLLEN TONGUE [None]
